FAERS Safety Report 19104168 (Version 1)
Quarter: 2021Q2

REPORT INFORMATION
  Report Type: Spontaneous
  Country: US (occurrence: US)
  Receive Date: 20210407
  Receipt Date: 20210407
  Transmission Date: 20210717
  Serious: No
  Sender: FDA-Public Use
  Company Number: US-TEVA-2021-US-1895012

PATIENT
  Sex: Female

DRUGS (8)
  1. MELATONIN 10 MG [Concomitant]
     Active Substance: MELATONIN
  2. ABILIFY [Concomitant]
     Active Substance: ARIPIPRAZOLE
  3. AUSTEDO [Suspect]
     Active Substance: DEUTETRABENAZINE
     Indication: TARDIVE DYSKINESIA
     Dosage: 12 MILLIGRAM DAILY;
     Route: 048
     Dates: start: 202006
  4. VITAMIN C 1000 MG [Concomitant]
  5. VITAMIN B COMPLEX [Concomitant]
     Active Substance: CYANOCOBALAMIN\DEXPANTHENOL\NIACINAMIDE\PYRIDOXINE HYDROCHLORIDE\RIBOFLAVIN 5^-PHOSPHATE SODIUM\THIAMINE HYDROCHLORIDE\VITAMIN B COMPLEX
  6. KLONOPIN 1 MG [Concomitant]
  7. TIZANIDINE HCL 2 MG [Concomitant]
  8. CHLORTALIDONE 25 MG [Concomitant]

REACTIONS (1)
  - Insomnia [Unknown]
